FAERS Safety Report 19926456 (Version 1)
Quarter: 2021Q4

REPORT INFORMATION
  Report Type: Spontaneous
  Country: US (occurrence: US)
  Receive Date: 20211006
  Receipt Date: 20211006
  Transmission Date: 20220303
  Serious: Yes (Other)
  Sender: FDA-Public Use
  Company Number: US-TEVA-2021-US-1961066

PATIENT
  Age: 84 Year
  Sex: Male

DRUGS (1)
  1. ZOLPIDEM [Suspect]
     Active Substance: ZOLPIDEM TARTRATE
     Indication: Insomnia
     Dosage: 10 MILLIGRAM DAILY; MEDICATION TAKEN AT NIGHT TIME FOR MORE THAN SIX YEARS
     Route: 065

REACTIONS (3)
  - Vascular dementia [Recovered/Resolved]
  - Encephalopathy [Recovered/Resolved]
  - Fall [Recovered/Resolved]
